FAERS Safety Report 13760507 (Version 2)
Quarter: 2017Q4

REPORT INFORMATION
  Report Type: Spontaneous
  Country: US (occurrence: US)
  Receive Date: 20170717
  Receipt Date: 20171116
  Transmission Date: 20180320
  Serious: No
  Sender: FDA-Public Use
  Company Number: US-BAUSCH-BL-2017-007532

PATIENT
  Age: 8 Decade
  Sex: Female

DRUGS (1)
  1. XIFAXAN [Suspect]
     Active Substance: RIFAXIMIN
     Indication: IRRITABLE BOWEL SYNDROME
     Route: 048
     Dates: start: 20170311

REACTIONS (4)
  - Product size issue [Unknown]
  - Product use complaint [Unknown]
  - Drug prescribing error [Unknown]
  - Drug ineffective [Unknown]
